FAERS Safety Report 17084758 (Version 2)
Quarter: 2019Q4

REPORT INFORMATION
  Report Type: Spontaneous
  Country: US (occurrence: US)
  Receive Date: 20191127
  Receipt Date: 20191203
  Transmission Date: 20200122
  Serious: Yes (Hospitalization, Other)
  Sender: FDA-Public Use
  Company Number: US-BRISTOL-MYERS SQUIBB COMPANY-BMS-2019-113574

PATIENT
  Age: 54 Year
  Sex: Female

DRUGS (6)
  1. NIVOLUMAB [Suspect]
     Active Substance: NIVOLUMAB
     Indication: PRODUCT USED FOR UNKNOWN INDICATION
     Dosage: 140 MG/50 ML, NORMAL SALINE, 2ND DOSE
     Route: 065
     Dates: start: 20181226
  2. NIVOLUMAB [Suspect]
     Active Substance: NIVOLUMAB
     Indication: MELANOMA RECURRENT
     Dosage: 140 MG/50 ML, NORMAL SALINE, 1ST DOSE
     Route: 065
     Dates: start: 20181205
  3. IPILIMUMAB [Suspect]
     Active Substance: IPILIMUMAB
     Indication: PRODUCT USED FOR UNKNOWN INDICATION
     Dosage: 450 MG/250 ML, NORMAL SALINE 3RD DOSE
     Route: 065
     Dates: start: 20190116
  4. IPILIMUMAB [Suspect]
     Active Substance: IPILIMUMAB
     Indication: PRODUCT USED FOR UNKNOWN INDICATION
     Dosage: 450 MG/250 ML, NORMAL SALINE 2ND DOSE
     Route: 065
     Dates: start: 20181226
  5. IPILIMUMAB [Suspect]
     Active Substance: IPILIMUMAB
     Indication: MELANOMA RECURRENT
     Dosage: 450 MG/250 ML, NORMAL SALINE 1ST DOSE
     Route: 065
     Dates: start: 20181205
  6. NIVOLUMAB [Suspect]
     Active Substance: NIVOLUMAB
     Indication: PRODUCT USED FOR UNKNOWN INDICATION
     Dosage: 140 MG/50 ML, NORMAL SALINE, 3RD DOSE
     Route: 065
     Dates: start: 20190116

REACTIONS (3)
  - Hypophysitis [Unknown]
  - Colitis [Unknown]
  - Dermatitis [Unknown]
